FAERS Safety Report 8438846-5 (Version None)
Quarter: 2012Q2

REPORT INFORMATION
  Report Type: 
  Country: None (occurrence: None)
  Receive Date: 20120615
  Receipt Date: 20120611
  Transmission Date: 20120825
  Serious: Yes (Hospitalization)
  Sender: FDA-Public Use
  Company Number: BR-US-EMD SERONO, INC.-7139540

PATIENT
  Sex: Female

DRUGS (4)
  1. OCADIL [Concomitant]
     Indication: PRODUCT USED FOR UNKNOWN INDICATION
  2. REBIF [Suspect]
     Indication: RELAPSING-REMITTING MULTIPLE SCLEROSIS
     Dates: start: 20050101
  3. REMITEC [Concomitant]
     Indication: PRODUCT USED FOR UNKNOWN INDICATION
  4. TEGRETOL [Concomitant]
     Indication: PRODUCT USED FOR UNKNOWN INDICATION

REACTIONS (3)
  - MULTIPLE SCLEROSIS RELAPSE [None]
  - FALL [None]
  - CONVULSION [None]
